FAERS Safety Report 8242294-0 (Version None)
Quarter: 2012Q1

REPORT INFORMATION
  Report Type: 
  Country: None (occurrence: None)
  Receive Date: 20120329
  Receipt Date: 20120327
  Transmission Date: 20120608
  Serious: No
  Sender: FDA-Public Use
  Company Number: US-PFIZER INC-2012079488

PATIENT
  Sex: Female
  Weight: 53.515 kg

DRUGS (5)
  1. EFFIENT [Concomitant]
     Indication: ARTERIOSCLEROSIS CORONARY ARTERY
     Dosage: UNK
     Route: 048
  2. ASPIRIN [Concomitant]
     Dosage: 81 MG, DAILY
  3. ZOLOFT [Suspect]
     Indication: DEPRESSION
     Dosage: 25 MG, DAILY
     Dates: start: 20111001
  4. ESTRADIOL [Concomitant]
     Dosage: UNK
  5. GUAIFENESIN [Concomitant]
     Dosage: UNK

REACTIONS (1)
  - ALOPECIA [None]
